FAERS Safety Report 22115783 (Version 1)
Quarter: 2023Q1

REPORT INFORMATION
  Report Type: Spontaneous
  Country: US (occurrence: None)
  Receive Date: 20230319
  Receipt Date: 20230319
  Transmission Date: 20230417
  Serious: Yes (Other)
  Sender: FDA-Public Use
  Company Number: None

PATIENT
  Age: 25 Year
  Sex: Female
  Weight: 65.25 kg

DRUGS (5)
  1. ZICAM EXTREME CONGESTION RELIEF [Suspect]
     Active Substance: OXYMETAZOLINE HYDROCHLORIDE
     Indication: Nasal congestion
     Dosage: OTHER QUANTITY : 2 SPRAY(S);?FREQUENCY : DAILY;?
     Route: 055
     Dates: start: 20230319, end: 20230319
  2. METHYLPHENIDATE [Concomitant]
     Active Substance: METHYLPHENIDATE
  3. Orillissa [Concomitant]
  4. NORETHINDRONE [Concomitant]
     Active Substance: NORETHINDRONE
  5. POTASSIUM [Concomitant]
     Active Substance: POTASSIUM

REACTIONS (2)
  - Ageusia [None]
  - Anosmia [None]

NARRATIVE: CASE EVENT DATE: 20230319
